FAERS Safety Report 14764808 (Version 2)
Quarter: 2018Q2

REPORT INFORMATION
  Report Type: Spontaneous
  Country: IL (occurrence: IL)
  Receive Date: 20180416
  Receipt Date: 20180515
  Transmission Date: 20180711
  Serious: Yes (Hospitalization, Other)
  Sender: FDA-Public Use
  Company Number: IL-ALLERGAN-1820601US

PATIENT
  Age: 68 Year
  Sex: Male

DRUGS (1)
  1. TIMOLOL UNK [Suspect]
     Active Substance: TIMOLOL
     Indication: INTRAOCULAR PRESSURE TEST ABNORMAL
     Dosage: UNK
     Route: 047

REACTIONS (4)
  - Syncope [Recovered/Resolved]
  - Bundle branch block right [Not Recovered/Not Resolved]
  - Electrocardiogram PR prolongation [Recovered/Resolved]
  - Sinus bradycardia [Recovered/Resolved]
